FAERS Safety Report 12331021 (Version 2)
Quarter: 2016Q2

REPORT INFORMATION
  Report Type: Spontaneous
  Country: US (occurrence: US)
  Receive Date: 20160504
  Receipt Date: 20160607
  Transmission Date: 20160815
  Serious: Yes (Death)
  Sender: FDA-Public Use
  Company Number: US-TAIHO ONCOLOGY INC-EU-2016-00865

PATIENT
  Sex: Male
  Weight: 97.61 kg

DRUGS (9)
  1. NORCO [Concomitant]
     Active Substance: ACETAMINOPHEN\HYDROCODONE BITARTRATE
     Dosage: NI
  2. FUROSEMIDE. [Concomitant]
     Active Substance: FUROSEMIDE
     Dosage: NI
  3. FENTANYL. [Concomitant]
     Active Substance: FENTANYL
     Dosage: NI
  4. LONSURF [Suspect]
     Active Substance: TIPIRACIL HYDROCHLORIDE\TRIFLURIDINE
     Indication: COLON CANCER
     Dosage: CYCLE 3
     Route: 048
     Dates: start: 20151208, end: 20160219
  5. DOXYCYCLINE. [Concomitant]
     Active Substance: DOXYCYCLINE
     Dosage: NI
  6. PANTOPRAZOLE [Concomitant]
     Active Substance: PANTOPRAZOLE SODIUM
     Dosage: NI
  7. MAGNESIUM [Concomitant]
     Active Substance: MAGNESIUM
     Dosage: NI
  8. POTASSIUM [Concomitant]
     Active Substance: POTASSIUM
     Dosage: NI
  9. ENOXAPARIN [Concomitant]
     Active Substance: ENOXAPARIN
     Dosage: NI

REACTIONS (1)
  - Disease progression [Fatal]
